FAERS Safety Report 25034039 (Version 1)
Quarter: 2025Q1

REPORT INFORMATION
  Report Type: Report from Study
  Country: MX (occurrence: MX)
  Receive Date: 20250304
  Receipt Date: 20250304
  Transmission Date: 20250409
  Serious: Yes (Other)
  Sender: NOVARTIS
  Company Number: MX-002147023-NVSC2025MX029717

PATIENT
  Age: 75 Year
  Sex: Female
  Weight: 53 kg

DRUGS (2)
  1. IMATINIB [Suspect]
     Active Substance: IMATINIB
     Indication: Chronic myeloid leukaemia
     Dosage: 1 DOSAGE FORM, BID
     Route: 048
  2. IMATINIB [Suspect]
     Active Substance: IMATINIB
     Route: 065
     Dates: end: 202401

REACTIONS (3)
  - Peripheral artery occlusion [Not Recovered/Not Resolved]
  - Disease progression [Recovering/Resolving]
  - Skin fissures [Recovering/Resolving]

NARRATIVE: CASE EVENT DATE: 20230908
